FAERS Safety Report 8475614 (Version 3)
Quarter: 2012Q4

REPORT INFORMATION
  Report Type: 
  Country: US (occurrence: US)
  Receive Date: 20120326
  Receipt Date: 20121031
  Transmission Date: 20130627
  Serious: Yes (Other)
  Sender: FDA-Public Use
  Company Number: US-US-EMD SERONO, INC.-7120133

PATIENT
  Sex: Female
  Weight: 83 kg

DRUGS (1)
  1. REBIF [Suspect]
     Indication: MULTIPLE SCLEROSIS
     Route: 058
     Dates: start: 20090319

REACTIONS (4)
  - Intervertebral disc protrusion [Recovered/Resolved]
  - Insomnia [Unknown]
  - Fatigue [Unknown]
  - Influenza like illness [Unknown]
